FAERS Safety Report 13132714 (Version 3)
Quarter: 2017Q2

REPORT INFORMATION
  Report Type: Spontaneous
  Country: GB (occurrence: GB)
  Receive Date: 20170120
  Receipt Date: 20170411
  Transmission Date: 20170830
  Serious: Yes (Death, Hospitalization, Other)
  Sender: FDA-Public Use
  Company Number: GB-AMGEN-GBRSP2017007735

PATIENT
  Age: 60 Year
  Sex: Male

DRUGS (4)
  1. PREDNISOLONE. [Suspect]
     Active Substance: PREDNISOLONE
     Indication: CUTANEOUS VASCULITIS
     Dosage: 5 MG, QD
     Route: 048
  2. NEUPOGEN [Suspect]
     Active Substance: FILGRASTIM
     Indication: NEUTROPENIA
     Dosage: 300 MICROM, Q3WK
     Route: 065
  3. NEUPOGEN [Suspect]
     Active Substance: FILGRASTIM
     Indication: LEUKOPENIA
  4. ADALIMUMAB [Concomitant]
     Active Substance: ADALIMUMAB
     Indication: PROPHYLAXIS
     Dosage: 40 MG, Q2WK
     Route: 058

REACTIONS (11)
  - Horner^s syndrome [Unknown]
  - Diplopia [Unknown]
  - General physical health deterioration [Unknown]
  - Cough [Recovering/Resolving]
  - Vomiting [Unknown]
  - Intestinal perforation [Fatal]
  - Ataxia [Unknown]
  - C-reactive protein increased [Recovering/Resolving]
  - Nausea [Unknown]
  - Polyarteritis nodosa [Fatal]
  - Dyspnoea [Recovering/Resolving]
